FAERS Safety Report 4761429-5 (Version None)
Quarter: 2005Q3

REPORT INFORMATION
  Report Type: 
  Country: None (occurrence: None)
  Receive Date: 20050901
  Receipt Date: 20041112
  Transmission Date: 20060218
  Serious: Yes (Other)
  Sender: FDA-Public Use
  Company Number: 15233

PATIENT
  Age: 66 Year
  Sex: Male
  Weight: 83.4619 kg

DRUGS (7)
  1. PACLITAXEL [Suspect]
     Dosage: 350 MG, IV
     Route: 042
     Dates: start: 20041001
  2. ALOXI [Concomitant]
  3. DECADRON [Concomitant]
  4. BENADRYL [Concomitant]
  5. PEPCID [Concomitant]
  6. ACCUPRIL [Concomitant]
  7. PROSCAR [Concomitant]

REACTIONS (9)
  - BLISTER [None]
  - DRY SKIN [None]
  - ERYTHEMA [None]
  - OEDEMA PERIPHERAL [None]
  - PRURITUS [None]
  - SKIN BURNING SENSATION [None]
  - SKIN EXFOLIATION [None]
  - SWELLING [None]
  - UNEVALUABLE EVENT [None]
